FAERS Safety Report 10092035 (Version 1)
Quarter: 2014Q2

REPORT INFORMATION
  Report Type: Spontaneous
  Country: US (occurrence: US)
  Receive Date: 20140421
  Receipt Date: 20140421
  Transmission Date: 20141212
  Serious: No
  Sender: FDA-Public Use
  Company Number: US-GILEAD-2013-0072069

PATIENT
  Sex: Female

DRUGS (2)
  1. LETAIRIS [Suspect]
     Indication: PRODUCT USED FOR UNKNOWN INDICATION
     Dosage: 5 MG, QD
     Dates: start: 20120622
  2. TYVASO [Concomitant]

REACTIONS (4)
  - Aphonia [Unknown]
  - Influenza [Unknown]
  - Extrasystoles [Unknown]
  - Cardioactive drug level increased [Unknown]
